FAERS Safety Report 14166025 (Version 3)
Quarter: 2019Q4

REPORT INFORMATION
  Report Type: Report from Study
  Country: JP (occurrence: JP)
  Receive Date: 20171107
  Receipt Date: 20191204
  Transmission Date: 20200122
  Serious: Yes (Hospitalization)
  Sender: FDA-Public Use
  Company Number: JP-MYLANLABS-2013S1024256

PATIENT
  Age: 17 Year
  Sex: Male
  Weight: 39 kg

DRUGS (49)
  1. CALTAN [Concomitant]
     Active Substance: CALCIUM CARBONATE
     Dosage: 500 MILLIGRAM, TID
     Route: 048
     Dates: start: 20140215, end: 20140224
  2. CALTAN [Concomitant]
     Active Substance: CALCIUM CARBONATE
     Dosage: 500 MILLIGRAM, BID
     Route: 048
     Dates: start: 20140227, end: 20140228
  3. CELLCEPT [Concomitant]
     Active Substance: MYCOPHENOLATE MOFETIL\MYCOPHENOLATE MOFETIL HYDROCHLORIDE
     Dosage: 2000 MG,QD
     Route: 048
     Dates: start: 20140214, end: 20140228
  4. CELLCEPT [Concomitant]
     Active Substance: MYCOPHENOLATE MOFETIL\MYCOPHENOLATE MOFETIL HYDROCHLORIDE
     Dosage: 375 MG,BID
     Route: 048
     Dates: start: 20140409
  5. SOLDEM [Concomitant]
     Active Substance: DEXTROSE\POTASSIUM CHLORIDE\SODIUM CHLORIDE\SODIUM LACTATE
     Indication: PRODUCT USED FOR UNKNOWN INDICATION
     Dosage: 200 ML,UNK
     Route: 041
     Dates: start: 20140206, end: 20140206
  6. PRIMPERAN [Concomitant]
     Active Substance: METOCLOPRAMIDE HYDROCHLORIDE
     Indication: PRODUCT USED FOR UNKNOWN INDICATION
     Dosage: 10 MG,UNK
     Route: 041
     Dates: start: 20140206, end: 20140206
  7. NICYSTAGON CAP. 150MG [Suspect]
     Active Substance: CYSTEAMINE
     Dosage: 600 MG, QID
     Route: 048
     Dates: start: 20161008, end: 20170413
  8. NICYSTAGON CAP. 150MG [Suspect]
     Active Substance: CYSTEAMINE
     Dosage: 600 MILLIGRAM, BID
     Route: 048
     Dates: start: 20170414, end: 20180124
  9. SLOW-K [Concomitant]
     Active Substance: POTASSIUM CHLORIDE
     Indication: ELECTROLYTE IMBALANCE
     Dosage: 1200 MG,BID
     Route: 048
     Dates: start: 20131022
  10. CALTAN [Concomitant]
     Active Substance: CALCIUM CARBONATE
     Dosage: 500 MILLIGRAM, BID
     Route: 048
     Dates: start: 20140225, end: 20140226
  11. GRACEPTOR [Concomitant]
     Active Substance: TACROLIMUS
     Dosage: 6 MILLIGRAM, QD
     Route: 048
     Dates: start: 20140205, end: 20140221
  12. GRACEPTOR [Concomitant]
     Active Substance: TACROLIMUS
     Dosage: 7 MILLIGRAM, QD
     Route: 048
     Dates: start: 20140222, end: 20140224
  13. CELLCEPT [Concomitant]
     Active Substance: MYCOPHENOLATE MOFETIL\MYCOPHENOLATE MOFETIL HYDROCHLORIDE
     Dosage: 1000 MG,BID
     Route: 048
     Dates: start: 20140213, end: 20140213
  14. PARIET [Concomitant]
     Active Substance: RABEPRAZOLE SODIUM
     Indication: PROPHYLAXIS AGAINST GASTROINTESTINAL ULCER
     Dosage: 10 MG,QD
     Route: 048
     Dates: start: 20140203, end: 20140228
  15. NICYSTAGON CAP. 150MG [Suspect]
     Active Substance: CYSTEAMINE
     Dosage: 600 MILLIGRAM, QID
     Route: 048
     Dates: start: 20180125
  16. SLOW-K [Concomitant]
     Active Substance: POTASSIUM CHLORIDE
     Dosage: 1200 MG, BID
     Route: 048
     Dates: start: 20140203, end: 20140319
  17. MIRCERA [Concomitant]
     Active Substance: METHOXY POLYETHYLENE GLYCOL-EPOETIN BETA
     Dosage: 100 MICROGRAM, TOTAL
     Route: 058
     Dates: start: 20140208, end: 20140208
  18. GRACEPTOR [Concomitant]
     Active Substance: TACROLIMUS
     Dosage: 8 MILLIGRAM, QD
     Route: 048
     Dates: start: 20140225, end: 20140702
  19. MEDROL [Concomitant]
     Active Substance: METHYLPREDNISOLONE
     Dosage: 8 MILLIGRAM, QD
     Route: 048
     Dates: start: 20140228, end: 20140306
  20. ACUATIM [Concomitant]
     Active Substance: NADIFLOXACIN
     Indication: SKIN INFECTION
     Dosage: UNK
     Route: 061
     Dates: start: 20140708
  21. MIRCERA [Concomitant]
     Active Substance: METHOXY POLYETHYLENE GLYCOL-EPOETIN BETA
     Indication: ANAEMIA
     Dosage: 50 ?G,MONTHLY
     Route: 058
     Dates: start: 20131021, end: 20140127
  22. CELLCEPT [Concomitant]
     Active Substance: MYCOPHENOLATE MOFETIL\MYCOPHENOLATE MOFETIL HYDROCHLORIDE
     Indication: PROPHYLAXIS AGAINST TRANSPLANT REJECTION
     Dosage: 1000 MG,QD
     Route: 048
     Dates: start: 20140203, end: 20140212
  23. CELLCEPT [Concomitant]
     Active Substance: MYCOPHENOLATE MOFETIL\MYCOPHENOLATE MOFETIL HYDROCHLORIDE
     Dosage: 1500 MG,QD
     Route: 048
     Dates: start: 20140301, end: 20140311
  24. BAKTAR [Concomitant]
     Active Substance: SULFAMETHOXAZOLE\TRIMETHOPRIM
     Indication: PRODUCT USED FOR UNKNOWN INDICATION
     Dosage: 1 DF,QD
     Route: 048
     Dates: start: 20140217
  25. NICYSTAGON CAP. 150MG [Suspect]
     Active Substance: CYSTEAMINE
     Indication: CYSTINOSIS
     Dosage: 600 MG, QID
     Route: 048
     Dates: start: 20120919
  26. URALYT [Concomitant]
     Active Substance: POTASSIUM CITRATE\TRISODIUM CITRATE DIHYDRATE
     Dosage: 2 G, TID
     Route: 048
     Dates: start: 20140212, end: 20140212
  27. CALTAN [Concomitant]
     Active Substance: CALCIUM CARBONATE
     Indication: PRODUCT USED FOR UNKNOWN INDICATION
     Dosage: 500 MG,QD
     Route: 048
     Dates: start: 20131022, end: 20140212
  28. MEDROL [Concomitant]
     Active Substance: METHYLPREDNISOLONE
     Dosage: 20 MILLIGRAM, QD
     Route: 048
     Dates: start: 20140203
  29. MEDROL [Concomitant]
     Active Substance: METHYLPREDNISOLONE
     Dosage: 20 MILLIGRAM, QD
     Route: 048
     Dates: start: 20140219, end: 20140221
  30. MEDROL [Concomitant]
     Active Substance: METHYLPREDNISOLONE
     Dosage: 32 MILLIGRAM, QD
     Route: 048
     Dates: start: 20140217, end: 20140218
  31. MEDROL [Concomitant]
     Active Substance: METHYLPREDNISOLONE
     Dosage: 16 MILLIGRAM, QD
     Route: 048
     Dates: start: 20140222, end: 20140224
  32. CELLCEPT [Concomitant]
     Active Substance: MYCOPHENOLATE MOFETIL\MYCOPHENOLATE MOFETIL HYDROCHLORIDE
     Dosage: 1000 MG,QD
     Route: 048
     Dates: start: 20140312, end: 20140408
  33. GRACEPTOR [Concomitant]
     Active Substance: TACROLIMUS
     Indication: PROPHYLAXIS AGAINST TRANSPLANT REJECTION
     Dosage: 4 MILLIGRAM, QD
     Route: 048
     Dates: start: 20140203, end: 20140204
  34. GRACEPTOR [Concomitant]
     Active Substance: TACROLIMUS
     Dosage: 6 MILLIGRAM, QD
     Route: 048
     Dates: start: 20140703
  35. MEDROL [Concomitant]
     Active Substance: METHYLPREDNISOLONE
     Indication: PROPHYLAXIS AGAINST TRANSPLANT REJECTION
     Dosage: 4 MG,QD
     Route: 048
     Dates: start: 20140307
  36. MAGCOROL P [Concomitant]
     Active Substance: MAGNESIUM CITRATE
     Indication: PRODUCT USED FOR UNKNOWN INDICATION
     Dosage: 50 G,QD
     Route: 048
     Dates: start: 20140212, end: 20140212
  37. RINDERON #1 [Concomitant]
     Indication: PRODUCT USED FOR UNKNOWN INDICATION
     Dosage: 4 MG,UNK
     Route: 041
     Dates: start: 20140206, end: 20140206
  38. SLOW-K [Concomitant]
     Active Substance: POTASSIUM CHLORIDE
     Dosage: 1200 MG, QD
     Route: 048
     Dates: start: 20140320
  39. MEDROL [Concomitant]
     Active Substance: METHYLPREDNISOLONE
     Dosage: 12 MILLIGRAM, QD
     Route: 048
     Dates: start: 20140225, end: 20140227
  40. FORSENID /00571901/ [Concomitant]
     Indication: PRODUCT USED FOR UNKNOWN INDICATION
     Dosage: 24 MG,QD
     Route: 048
     Dates: start: 20140211, end: 20140212
  41. MPR-1020 [Concomitant]
     Indication: CYSTINOSIS
     Dosage: UNK
     Route: 065
     Dates: start: 20120809
  42. EDIROL [Concomitant]
     Active Substance: ELDECALCITOL
     Indication: PRODUCT USED FOR UNKNOWN INDICATION
     Dosage: 0.75 MICROGRAM, QD
     Route: 048
     Dates: start: 20180523
  43. NICYSTAGON CAP. 150MG [Suspect]
     Active Substance: CYSTEAMINE
     Dosage: 450 MILLIGRAM, BID
     Route: 048
     Dates: start: 20170414, end: 20180124
  44. URALYT [Concomitant]
     Active Substance: POTASSIUM CITRATE\TRISODIUM CITRATE DIHYDRATE
     Indication: ELECTROLYTE IMBALANCE
     Dosage: 2 G, TID
     Route: 048
     Dates: start: 20110817, end: 20140211
  45. SODIUM BICARBONATE. [Concomitant]
     Active Substance: SODIUM BICARBONATE
     Indication: ACIDOSIS
     Dosage: 1 G,TID
     Route: 048
     Dates: start: 20131022, end: 20140212
  46. ALFA D [Concomitant]
     Indication: VITAMIN D DECREASED
     Dosage: .5 ?G,QD
     Route: 048
     Dates: start: 20130922, end: 20140212
  47. LONASEN [Concomitant]
     Active Substance: BLONANSERIN
     Indication: PRODUCT USED FOR UNKNOWN INDICATION
     Dosage: 4 MG,QD
     Route: 048
     Dates: start: 20140106, end: 20140204
  48. RITUXAN [Concomitant]
     Active Substance: RITUXIMAB
     Indication: PRODUCT USED FOR UNKNOWN INDICATION
     Dosage: 200 MG,UNK
     Route: 041
     Dates: start: 20140206, end: 20140206
  49. BONVIVA [Concomitant]
     Active Substance: IBANDRONATE SODIUM
     Indication: PRODUCT USED FOR UNKNOWN INDICATION
     Dosage: 100 MILLIGRAM, 28D CYCLE
     Route: 048
     Dates: start: 20180620

REACTIONS (6)
  - Chronic kidney disease [Recovered/Resolved]
  - Feeling abnormal [Recovered/Resolved]
  - Pruritus [Recovered/Resolved]
  - Rash [Recovered/Resolved]
  - Abdominal distension [Recovering/Resolving]
  - Blood creatinine increased [Recovering/Resolving]

NARRATIVE: CASE EVENT DATE: 20140106
